FAERS Safety Report 4372817-3 (Version None)
Quarter: 2004Q2

REPORT INFORMATION
  Report Type: 
  Country: None (occurrence: None)
  Receive Date: 20040602
  Receipt Date: 20040426
  Transmission Date: 20050107
  Serious: No
  Sender: FDA-Public Use
  Company Number: 200417734BWH

PATIENT
  Age: 61 Year
  Sex: Male

DRUGS (3)
  1. LEVITRA [Suspect]
     Indication: ERECTILE DYSFUNCTION
     Dosage: 10 MG PRN , ORAL : 10 MG PRN, ORAL
     Route: 048
     Dates: start: 20040401
  2. LEVITRA [Suspect]
     Indication: ERECTILE DYSFUNCTION
     Dosage: 10 MG PRN , ORAL : 10 MG PRN, ORAL
     Route: 048
     Dates: start: 20040401
  3. VIAGRA [Concomitant]

REACTIONS (2)
  - ABNORMAL SENSATION IN EYE [None]
  - SINUS CONGESTION [None]
